FAERS Safety Report 4754125-1 (Version None)
Quarter: 2005Q3

REPORT INFORMATION
  Report Type: 
  Country: None (occurrence: None)
  Receive Date: 20050825
  Receipt Date: 20041020
  Transmission Date: 20060218
  Serious: Yes (Other)
  Sender: FDA-Public Use
  Company Number: HQWYE076526OCT04

PATIENT
  Age: 55 Year
  Sex: Female
  Weight: 56.75 kg

DRUGS (1)
  1. CHILDREN'S ADVIL [Suspect]
     Indication: DRUG USE FOR UNKNOWN INDICATION
     Dosage: 1-1/2 TEASPOONS, ORAL
     Route: 048
     Dates: start: 20041019

REACTIONS (3)
  - DISORIENTATION [None]
  - DIZZINESS [None]
  - NAUSEA [None]
